FAERS Safety Report 19511805 (Version 1)
Quarter: 2021Q3

REPORT INFORMATION
  Report Type: Spontaneous
  Country: US (occurrence: US)
  Receive Date: 20210709
  Receipt Date: 20210709
  Transmission Date: 20211014
  Serious: Yes (Other)
  Sender: FDA-Public Use
  Company Number: US-ACCORD-231131

PATIENT
  Age: 64 Year
  Sex: Male

DRUGS (3)
  1. ATEZOLIZUMAB. [Suspect]
     Active Substance: ATEZOLIZUMAB
     Indication: BLADDER CANCER
  2. ETOPOSIDE. [Suspect]
     Active Substance: ETOPOSIDE
     Indication: BLADDER CANCER
  3. CISPLATIN. [Suspect]
     Active Substance: CISPLATIN
     Indication: BLADDER CANCER

REACTIONS (2)
  - Acute kidney injury [Unknown]
  - Constipation [Unknown]
